FAERS Safety Report 12866922 (Version 1)
Quarter: 2016Q4

REPORT INFORMATION
  Report Type: Spontaneous
  Country: US (occurrence: US)
  Receive Date: 20161020
  Receipt Date: 20161020
  Transmission Date: 20170207
  Serious: Yes (Other)
  Sender: FDA-Public Use
  Company Number: US-MALLINCKRODT-T201605126

PATIENT
  Age: 59 Year
  Sex: Female
  Weight: 57 kg

DRUGS (7)
  1. LOSARTAN. [Concomitant]
     Active Substance: LOSARTAN
     Dosage: 50 MG, QD
  2. SYNTHROID [Concomitant]
     Active Substance: LEVOTHYROXINE SODIUM
     Indication: PRODUCT USED FOR UNKNOWN INDICATION
     Dosage: 137 ?G, QD
  3. ULTRA-TECHNEKOW V4 [Suspect]
     Active Substance: TECHNETIUM TC-99M SODIUM PERTECHNETATE
     Indication: DYSPNOEA
     Dosage: 10.7 MCI, SINGLE
     Route: 065
     Dates: start: 20161010, end: 20161010
  4. FIXMYSKIN HEALING BALM VANILLA FRAGRANCE [Suspect]
     Active Substance: HYDROCORTISONE
     Dosage: 10 MG, BID
  5. METFORMIN [Concomitant]
     Active Substance: METFORMIN HYDROCHLORIDE
     Dosage: 500MG-2 IN AM /3 IN PM
  6. TECHNETIUM TC-99M SESTAMIBI KIT [Suspect]
     Active Substance: TECHNETIUM TC-99M SESTAMIBI
     Indication: DYSPNOEA
     Dosage: UNK UNK, SINGLE
     Route: 042
     Dates: start: 20161010, end: 20161010
  7. FLUDROCORTISONE [Concomitant]
     Active Substance: FLUDROCORTISONE
     Dosage: 0.1 MG, QD

REACTIONS (2)
  - Altered state of consciousness [Recovered/Resolved]
  - Seizure [Recovered/Resolved]

NARRATIVE: CASE EVENT DATE: 20161010
